FAERS Safety Report 8018424-2 (Version None)
Quarter: 2011Q4

REPORT INFORMATION
  Report Type: 
  Country: None (occurrence: None)
  Receive Date: 20111228
  Receipt Date: 20111220
  Transmission Date: 20120403
  Serious: Yes (Disabling, Other)
  Sender: FDA-Public Use
  Company Number: 2011MA009546

PATIENT
  Age: 37 Year
  Sex: Female

DRUGS (7)
  1. XOLAIR [Suspect]
     Indication: ASTHMA
     Dosage: 300 MG, QM, SC
     Route: 058
     Dates: start: 20091104, end: 20110504
  2. ATROVENT [Concomitant]
  3. IPRATROPIUM BROMIDE [Suspect]
     Indication: ASTHMA
  4. MONTELUKAST SODIUM [Suspect]
     Dosage: 10 MG, PO
     Dates: end: 20070101
  5. SERETIDE (NO PREF. NAME) [Suspect]
     Indication: ASTHMA
     Dates: start: 20050101
  6. CITALOPRAM [Concomitant]
  7. ALBUTEROL SULFATE AUTOHALER [Concomitant]

REACTIONS (7)
  - TRANSIENT ISCHAEMIC ATTACK [None]
  - HEMIPARESIS [None]
  - HEADACHE [None]
  - DYSAESTHESIA [None]
  - PARAESTHESIA [None]
  - SENSORY DISTURBANCE [None]
  - NERVOUS SYSTEM DISORDER [None]
